FAERS Safety Report 6847186-7 (Version None)
Quarter: 2010Q3

REPORT INFORMATION
  Report Type: 
  Country: None (occurrence: None)
  Receive Date: 20100716
  Receipt Date: 20100706
  Transmission Date: 20110219
  Serious: No
  Sender: FDA-Public Use
  Company Number: US-BIOGENIDEC-2010BI023352

PATIENT
  Sex: Female

DRUGS (3)
  1. AVONEX [Suspect]
     Indication: MULTIPLE SCLEROSIS
     Route: 030
     Dates: start: 20081016, end: 20090821
  2. AVONEX [Suspect]
     Route: 030
     Dates: start: 20091016, end: 20100624
  3. AVONEX [Suspect]
     Route: 030
     Dates: start: 20100624, end: 20100701

REACTIONS (5)
  - CONCUSSION [None]
  - EYE HAEMORRHAGE [None]
  - FALL [None]
  - INFLUENZA LIKE ILLNESS [None]
  - LOSS OF CONSCIOUSNESS [None]
